FAERS Safety Report 14947308 (Version 3)
Quarter: 2018Q2

REPORT INFORMATION
  Report Type: Spontaneous
  Country: DE (occurrence: DE)
  Receive Date: 20180529
  Receipt Date: 20180625
  Transmission Date: 20180711
  Serious: Yes (Hospitalization)
  Sender: FDA-Public Use
  Company Number: DE-PFIZER INC-2018211647

PATIENT
  Age: 55 Year
  Sex: Male

DRUGS (5)
  1. HYDROMORPHON [Concomitant]
     Active Substance: HYDROMORPHONE
     Dosage: 24 MG, DAILY
  2. CISPLATIN. [Suspect]
     Active Substance: CISPLATIN
     Dosage: UNK
     Route: 065
  3. METAMIZOL [Concomitant]
     Active Substance: METAMIZOLE SODIUM
     Dosage: 40 GTT, (6 TIMES DAILY; 500 MG/ML, 40 GTT/6 X TGL, TROPFEN UNKNOWN
  4. HYDROMORPHON [Concomitant]
     Active Substance: HYDROMORPHONE
     Dosage: 4 MG, 3X/DAY(2-2-2-0)
  5. GEMCITABINE HYDROCHLORIDE. [Suspect]
     Active Substance: GEMCITABINE HYDROCHLORIDE
     Dosage: UNK
     Route: 065

REACTIONS (4)
  - Pyrexia [Unknown]
  - General physical health deterioration [Unknown]
  - Vomiting [Unknown]
  - Nausea [Unknown]
